FAERS Safety Report 4538744-3 (Version None)
Quarter: 2004Q4

REPORT INFORMATION
  Report Type: 
  Country: None (occurrence: None)
  Receive Date: 20041222
  Receipt Date: 20040112
  Transmission Date: 20050328
  Serious: Yes (Disabling)
  Sender: FDA-Public Use
  Company Number: 2004IM000027

PATIENT
  Age: 67 Year
  Sex: Male
  Weight: 85.7298 kg

DRUGS (11)
  1. ACTIMMUNE [Suspect]
     Indication: INTERSTITIAL LUNG DISEASE
     Dosage: 200 UG; TIW; SUBCUTANEOUS
     Route: 058
     Dates: start: 20010501
  2. GEMFIBROZIL [Concomitant]
  3. CEREFOLIN (FOLIC ACID) [Concomitant]
  4. LIPITOR [Concomitant]
  5. GLUCOVANCE [Concomitant]
  6. SYNTHROID [Concomitant]
  7. ALTACE [Concomitant]
  8. ACETYLSALICYLIC ACID [Concomitant]
  9. AVAPRO [Concomitant]
  10. OXYGEN [Concomitant]
  11. FLU VACCINE [Concomitant]

REACTIONS (15)
  - BACK PAIN [None]
  - DECREASED APPETITE [None]
  - DILATATION VENTRICULAR [None]
  - DISCOMFORT [None]
  - DYSPNOEA [None]
  - EXERCISE CAPACITY DECREASED [None]
  - HEADACHE [None]
  - INFLUENZA LIKE ILLNESS [None]
  - INSOMNIA [None]
  - NAUSEA [None]
  - PAIN [None]
  - PAIN IN EXTREMITY [None]
  - PLEURAL EFFUSION [None]
  - PULMONARY OEDEMA [None]
  - TOTAL LUNG CAPACITY DECREASED [None]
